FAERS Safety Report 25390191 (Version 2)
Quarter: 2025Q2

REPORT INFORMATION
  Report Type: Spontaneous
  Country: US (occurrence: US)
  Receive Date: 20250603
  Receipt Date: 20250612
  Transmission Date: 20250717
  Serious: Yes (Death, Life-Threatening, Other)
  Sender: BRACCO
  Company Number: US-BRACCO-2025US03274

PATIENT
  Age: 92 Year
  Sex: Female

DRUGS (1)
  1. ISOVUE 300 [Suspect]
     Active Substance: IOPAMIDOL
     Indication: Computerised tomogram
     Route: 042
     Dates: start: 20250519, end: 20250519

REACTIONS (1)
  - Cardiac arrest [Fatal]

NARRATIVE: CASE EVENT DATE: 20250519
